FAERS Safety Report 16033607 (Version 1)
Quarter: 2019Q1

REPORT INFORMATION
  Report Type: Spontaneous
  Country: US (occurrence: US)
  Receive Date: 20190305
  Receipt Date: 20190305
  Transmission Date: 20190418
  Serious: No
  Sender: FDA-Public Use
  Company Number: US-IMPAX LABORATORIES, LLC-2018-IPXL-02460

PATIENT
  Sex: Male

DRUGS (2)
  1. RYTARY [Suspect]
     Active Substance: CARBIDOPA\LEVODOPA
     Indication: PRODUCT USED FOR UNKNOWN INDICATION
     Dosage: 36.25/145 MG, ONE TO TWO CAPSULES, FIVE TIMES DAILY
     Route: 048
  2. RYTARY [Suspect]
     Active Substance: CARBIDOPA\LEVODOPA
     Dosage: 61.25/245 MG TWO CAPSULES, FIVE TIMES DAILY
     Route: 048

REACTIONS (7)
  - Balance disorder [Unknown]
  - Anxiety [Unknown]
  - Prescribed overdose [Unknown]
  - Paraesthesia [Unknown]
  - Thinking abnormal [Unknown]
  - Depression [Unknown]
  - Dyskinesia [Unknown]
